FAERS Safety Report 7315331-5 (Version None)
Quarter: 2011Q1

REPORT INFORMATION
  Report Type: 
  Country: None (occurrence: None)
  Receive Date: 20110225
  Receipt Date: 20110210
  Transmission Date: 20110831
  Serious: Yes (Other)
  Sender: FDA-Public Use
  Company Number: US-ROCHE-762052

PATIENT
  Sex: Female

DRUGS (2)
  1. PEGINTERFERON ALFA-2A [Suspect]
     Indication: HEPATITIS C
     Dosage: LAST DOSE ON 28 JANUARY 2011
     Route: 065
     Dates: start: 20101231, end: 20110203
  2. RIBAVIRIN [Suspect]
     Indication: HEPATITIS C
     Dosage: DIVIDED DOSES
     Route: 065
     Dates: start: 20101231, end: 20110203

REACTIONS (3)
  - FATIGUE [None]
  - GLAUCOMA [None]
  - LABORATORY TEST ABNORMAL [None]
